FAERS Safety Report 7944445-1 (Version None)
Quarter: 2011Q4

REPORT INFORMATION
  Report Type: 
  Country: None (occurrence: None)
  Receive Date: 20111129
  Receipt Date: 20111116
  Transmission Date: 20120403
  Serious: Yes (Other)
  Sender: FDA-Public Use
  Company Number: US-PAR PHARMACEUTICAL, INC-2011SCPR003418

PATIENT

DRUGS (2)
  1. FENTANYL CITRATE [Suspect]
     Indication: TRIGEMINAL NEURALGIA
     Dosage: 800 MCG FOUR TIMES A DAY, ORAL TRANSMUCOSAL
     Route: 048
  2. FENTANYL CITRATE [Suspect]
     Dosage: 1200 MCG, 8-10 LOZENGES/ DAY, ORAL TRANSMUCOSAL
     Route: 048

REACTIONS (4)
  - OFF LABEL USE [None]
  - DENTAL CARIES [None]
  - DRUG ABUSE [None]
  - TOOTH LOSS [None]
